FAERS Safety Report 14012618 (Version 1)
Quarter: 2017Q3

REPORT INFORMATION
  Report Type: Report from Study
  Country: US (occurrence: US)
  Receive Date: 20170926
  Receipt Date: 20170926
  Transmission Date: 20171128
  Serious: Yes (Death, Other)
  Sender: FDA-Public Use
  Company Number: US-AMGEN-USASL2017143721

PATIENT
  Sex: Male

DRUGS (1)
  1. NPLATE [Suspect]
     Active Substance: ROMIPLOSTIM
     Indication: LEUKAEMIA
     Dosage: UNK
     Route: 065

REACTIONS (2)
  - Off label use [Unknown]
  - Intracranial aneurysm [Fatal]
